FAERS Safety Report 7646195-8 (Version None)
Quarter: 2011Q3

REPORT INFORMATION
  Report Type: 
  Country: None (occurrence: None)
  Receive Date: 20110801
  Receipt Date: 20110720
  Transmission Date: 20111222
  Serious: No
  Sender: FDA-Public Use
  Company Number: US-BIOGENIDEC-2011BI027360

PATIENT
  Age: 47 Year
  Sex: Female

DRUGS (4)
  1. BACLOFEN [Concomitant]
     Indication: MUSCLE SPASMS
     Dates: start: 20050101
  2. TYSABRI [Suspect]
     Indication: MULTIPLE SCLEROSIS
     Route: 042
     Dates: start: 20100325
  3. PROVIGIL [Concomitant]
     Indication: FATIGUE
  4. NEURONTIN [Concomitant]
     Indication: HEADACHE

REACTIONS (13)
  - HYPOAESTHESIA [None]
  - DIPLOPIA [None]
  - NAUSEA [None]
  - BACK PAIN [None]
  - PARAESTHESIA [None]
  - BAND SENSATION [None]
  - FATIGUE [None]
  - MUSCLE SPASMS [None]
  - VISION BLURRED [None]
  - BINOCULAR EYE MOVEMENT DISORDER [None]
  - EXTRAOCULAR MUSCLE DISORDER [None]
  - CONSTIPATION [None]
  - MIGRAINE [None]
